FAERS Safety Report 14221070 (Version 4)
Quarter: 2018Q2

REPORT INFORMATION
  Report Type: Report from Study
  Country: CA (occurrence: CA)
  Receive Date: 20171124
  Receipt Date: 20180614
  Transmission Date: 20180711
  Serious: Yes (Disabling)
  Sender: FDA-Public Use
  Company Number: PHHY2017CA136531

PATIENT
  Age: 59 Year
  Sex: Male

DRUGS (3)
  1. GLEEVEC [Suspect]
     Active Substance: IMATINIB MESYLATE
     Indication: GASTROINTESTINAL STROMAL TUMOUR
     Dosage: 400 MG, QD
     Route: 048
     Dates: start: 20170812
  2. BABY ASPIRIN [Concomitant]
     Active Substance: ASPIRIN
     Indication: PRODUCT USED FOR UNKNOWN INDICATION
     Route: 065
  3. VITAMIN D [Concomitant]
     Active Substance: CHOLECALCIFEROL
     Indication: PRODUCT USED FOR UNKNOWN INDICATION
     Route: 065

REACTIONS (16)
  - Rhinorrhoea [Unknown]
  - Fatigue [Recovering/Resolving]
  - Discomfort [Unknown]
  - Lacrimation increased [Unknown]
  - Yawning [Unknown]
  - Malaise [Unknown]
  - Chills [Unknown]
  - Nausea [Unknown]
  - Feeling abnormal [Unknown]
  - Diarrhoea [Unknown]
  - Cold sweat [Unknown]
  - Nasopharyngitis [Unknown]
  - Vomiting [Unknown]
  - Rash [Unknown]
  - Gastrointestinal sounds abnormal [Recovering/Resolving]
  - Incision site complication [Recovering/Resolving]

NARRATIVE: CASE EVENT DATE: 201708
